FAERS Safety Report 10039286 (Version 2)
Quarter: 2014Q2

REPORT INFORMATION
  Report Type: Report from Study
  Country: MX (occurrence: MX)
  Receive Date: 20140326
  Receipt Date: 20140408
  Transmission Date: 20141212
  Serious: No
  Sender: FDA-Public Use
  Company Number: PHHY2014MX035465

PATIENT
  Age: 70 Year
  Sex: Male

DRUGS (2)
  1. EXFORGE HCT [Suspect]
     Indication: HYPERTENSION
     Dosage: 1 DF(320/10/25MG), DAILY
     Route: 048
     Dates: start: 20131118
  2. EXFORGE HCT [Suspect]
     Dosage: 0.5 DF(320/10/25MG), DAILY
     Route: 048
     Dates: start: 20131218

REACTIONS (3)
  - Weight decreased [Not Recovered/Not Resolved]
  - Blood pressure decreased [Recovered/Resolved]
  - Wrong technique in drug usage process [Not Recovered/Not Resolved]
